FAERS Safety Report 9551508 (Version 1)
Quarter: 2013Q3

REPORT INFORMATION
  Report Type: Spontaneous
  Country: US (occurrence: None)
  Receive Date: 20130724
  Receipt Date: 20130724
  Transmission Date: 20140515
  Serious: Yes (Hospitalization)
  Sender: FDA-Public Use
  Company Number: PHEH2012US010892

PATIENT
  Age: 77 Year
  Sex: Male

DRUGS (7)
  1. GLEEVEC [Suspect]
     Indication: CHRONIC MYELOID LEUKAEMIA
     Route: 048
     Dates: start: 20120227
  2. ZYLOPRIM (ALLOPURINOL) [Concomitant]
  3. TOPROL XL (METOPROLOL SUCCINATE) [Concomitant]
  4. DIOVAN (VALSARTAN) [Concomitant]
  5. CRESTOR (ROSUVASTATIN CALCIUM) [Concomitant]
  6. QUESTRAN (COLESTYRAMINE) [Concomitant]
  7. NEURONTIN (GABAPENTIN) [Concomitant]

REACTIONS (2)
  - Platelet count decreased [None]
  - Dyspnoea [None]
